FAERS Safety Report 19007067 (Version 1)
Quarter: 2021Q1

REPORT INFORMATION
  Report Type: Spontaneous
  Country: US (occurrence: US)
  Receive Date: 20210313
  Receipt Date: 20210313
  Transmission Date: 20210420
  Serious: Yes (Other)
  Sender: FDA-Public Use
  Company Number: None

PATIENT
  Age: 36 Year
  Sex: Male
  Weight: 60.75 kg

DRUGS (4)
  1. PAIN RELIEF ALL DAY [Suspect]
     Active Substance: NAPROXEN SODIUM
     Indication: PYREXIA
     Dosage: ?          QUANTITY:1 TABLET(S);?
     Route: 048
     Dates: start: 20210310, end: 20210312
  2. PAIN RELIEF ALL DAY [Suspect]
     Active Substance: NAPROXEN SODIUM
     Indication: INFLUENZA LIKE ILLNESS
     Dosage: ?          QUANTITY:1 TABLET(S);?
     Route: 048
     Dates: start: 20210310, end: 20210312
  3. MULTIVITAMINS [Concomitant]
     Active Substance: VITAMINS
  4. PAIN RELIEF ALL DAY [Suspect]
     Active Substance: NAPROXEN SODIUM
     Indication: PAIN
     Dosage: ?          QUANTITY:1 TABLET(S);?
     Route: 048
     Dates: start: 20210310, end: 20210312

REACTIONS (3)
  - Vocal cord disorder [None]
  - Haemorrhage [None]
  - Aphonia [None]

NARRATIVE: CASE EVENT DATE: 20210313
